FAERS Safety Report 6210322-X (Version None)
Quarter: 2009Q2

REPORT INFORMATION
  Report Type: 
  Country: None (occurrence: None)
  Receive Date: 20090529
  Receipt Date: 20090529
  Transmission Date: 20091009
  Serious: Yes (Hospitalization)
  Sender: FDA-Public Use
  Company Number: None

PATIENT
  Age: 76 Year
  Sex: Male
  Weight: 94.9 kg

DRUGS (1)
  1. SULFAMETHOXAZOLE AND TRIMETHOPRIM [Suspect]
     Indication: URINARY TRACT INFECTION
     Dosage: 1 TABLET EVERY 12 HOURS PO
     Route: 048
     Dates: start: 20090523, end: 20090528

REACTIONS (2)
  - OBSTRUCTIVE AIRWAYS DISORDER [None]
  - PHARYNGEAL OEDEMA [None]
